FAERS Safety Report 16291107 (Version 17)
Quarter: 2024Q3

REPORT INFORMATION
  Report Type: Spontaneous
  Country: US (occurrence: US)
  Receive Date: 20190509
  Receipt Date: 20240723
  Transmission Date: 20241017
  Serious: No
  Sender: PFIZER
  Company Number: US-PFIZER INC-2019191024

PATIENT
  Age: 79 Year
  Sex: Female
  Weight: 48.08 kg

DRUGS (6)
  1. BOSULIF [Suspect]
     Active Substance: BOSUTINIB MONOHYDRATE
     Indication: Chronic myeloid leukaemia
     Dosage: 300 MG, 1X/DAY (AT NIGHT/THREE TABLETS ONCE A DAY BY MOUTH WITH A MEAL)
     Route: 048
     Dates: start: 201710, end: 20210722
  2. BOSULIF [Suspect]
     Active Substance: BOSUTINIB MONOHYDRATE
     Dosage: 100 MG, 1X/DAY (TAKE 1 PILL A DAY)
  3. BOSULIF [Suspect]
     Active Substance: BOSUTINIB MONOHYDRATE
     Dosage: 300 MG (3 TABLETS OF 100 MG), 1X/DAY (BY MOUTH WITH A MEAL)
     Route: 048
  4. BOSULIF [Suspect]
     Active Substance: BOSUTINIB MONOHYDRATE
     Dosage: 400 MG, DAILY
     Dates: start: 20210722
  5. ALPRAZOLAM [Concomitant]
     Active Substance: ALPRAZOLAM
     Indication: Sleep disorder
     Dosage: 0.5 MG, 1X/DAY (15 MINUTES BEFORE BED TIME)
     Route: 048
  6. LISINOPRIL [Concomitant]
     Active Substance: LISINOPRIL
     Indication: Hypertension
     Dosage: 10 MG, 1X/DAY (ONCE AT NIGHT)

REACTIONS (8)
  - Alopecia [Recovered/Resolved]
  - Fatigue [Not Recovered/Not Resolved]
  - Nail bed infection [Not Recovered/Not Resolved]
  - Weight decreased [Not Recovered/Not Resolved]
  - Diarrhoea [Recovered/Resolved]
  - Product quality issue [Unknown]
  - Product storage error [Unknown]
  - Intentional product misuse [Unknown]

NARRATIVE: CASE EVENT DATE: 20200203
